FAERS Safety Report 19205550 (Version 4)
Quarter: 2022Q3

REPORT INFORMATION
  Report Type: Report from Study
  Country: US (occurrence: US)
  Receive Date: 20210503
  Receipt Date: 20220920
  Transmission Date: 20221026
  Serious: Yes (Other)
  Sender: FDA-Public Use
  Company Number: US-GLAXOSMITHKLINE-US2021AMR088589

PATIENT

DRUGS (9)
  1. NIRAPARIB [Suspect]
     Active Substance: NIRAPARIB
     Indication: Ovarian cancer
     Dosage: 100 MG, QD
     Route: 048
     Dates: start: 20210416, end: 20210511
  2. NIRAPARIB [Suspect]
     Active Substance: NIRAPARIB
     Dosage: 100 MG, QD
     Route: 048
     Dates: start: 20210601
  3. NIRAPARIB [Suspect]
     Active Substance: NIRAPARIB
     Dosage: 100 MG, QD
     Route: 048
     Dates: start: 2021
  4. NIRAPARIB [Suspect]
     Active Substance: NIRAPARIB
     Dosage: 100 MG, QD (PM WITH CRACKERS)
     Route: 048
     Dates: start: 2021, end: 20210810
  5. NIRAPARIB [Suspect]
     Active Substance: NIRAPARIB
     Dosage: 100 MG (100MG X 2 DAYS ON AND 1 DAY OFF)
     Dates: start: 202108
  6. NIRAPARIB [Suspect]
     Active Substance: NIRAPARIB
     Dosage: 100 MG, QD (W/ DINNER)
     Route: 048
     Dates: start: 2021
  7. NIRAPARIB [Suspect]
     Active Substance: NIRAPARIB
     Dosage: 100 MG, Z ( (2 DAYS ON AND 1 DAY OFF))
     Dates: start: 202109
  8. NIRAPARIB [Suspect]
     Active Substance: NIRAPARIB
     Dosage: 100 MG, Z  (2 DAYS ON AND 1 DAY OFF)
     Dates: start: 202110
  9. NIRAPARIB [Suspect]
     Active Substance: NIRAPARIB
     Dosage: 100 MG, Z (2 DAYS ON AND 1 DAY OFF)

REACTIONS (12)
  - Spinal fracture [Not Recovered/Not Resolved]
  - Constipation [Recovering/Resolving]
  - Eye disorder [Not Recovered/Not Resolved]
  - Fatigue [Not Recovered/Not Resolved]
  - Nausea [Recovered/Resolved]
  - Confusional state [Not Recovered/Not Resolved]
  - Balance disorder [Not Recovered/Not Resolved]
  - Platelet count decreased [Not Recovered/Not Resolved]
  - Blood pressure increased [Recovered/Resolved]
  - Blood magnesium decreased [Not Recovered/Not Resolved]
  - Sleep disorder [Recovering/Resolving]
  - Off label use [Unknown]
